FAERS Safety Report 18917476 (Version 6)
Quarter: 2022Q2

REPORT INFORMATION
  Report Type: Report from Study
  Country: PL (occurrence: PL)
  Receive Date: 20210219
  Receipt Date: 20220420
  Transmission Date: 20220721
  Serious: Yes (Other)
  Sender: FDA-Public Use
  Company Number: PL-AMERICAN REGENT INC-2021000383

PATIENT
  Age: 73 Year
  Sex: Male
  Weight: 107 kg

DRUGS (11)
  1. FERRIC CARBOXYMALTOSE [Suspect]
     Active Substance: FERRIC CARBOXYMALTOSE
     Indication: Cardiac failure chronic
     Dosage: 15 MILLILITER, SINGLE (KIT 218826)
     Route: 042
     Dates: start: 20210204, end: 20210204
  2. FERRIC CARBOXYMALTOSE [Suspect]
     Active Substance: FERRIC CARBOXYMALTOSE
     Indication: Iron deficiency
     Dosage: 15 MILLILITER, SINGLE (KIT 115328)
     Route: 042
     Dates: start: 20210211, end: 20210211
  3. ENOXAPARIN SODIUM [Concomitant]
     Active Substance: ENOXAPARIN SODIUM
     Indication: Atrial fibrillation
     Dosage: 100MG/1ML, QD
     Route: 058
     Dates: start: 202009, end: 20210211
  4. ALLOPURINOL [Concomitant]
     Active Substance: ALLOPURINOL
     Indication: Hyperuricaemia
     Dosage: 100 MILLIGRAM, BID
     Route: 048
     Dates: start: 202002
  5. ACARD [Concomitant]
     Indication: Myocardial ischaemia
     Dosage: 75 MILLIGRAM, QD
     Route: 048
     Dates: start: 202002, end: 20210211
  6. ATORVASTATIN CALCIUM [Concomitant]
     Active Substance: ATORVASTATIN CALCIUM
     Indication: Hypercholesterolaemia
     Dosage: 20 MILLIGRAM, QD
     Route: 048
     Dates: start: 202002
  7. FUROSEMIDUM                        /00032601/ [Concomitant]
     Indication: Cardiac failure
     Dosage: 80 MILLIGRAM, BID
     Route: 048
     Dates: start: 202002
  8. GENSULIN [Concomitant]
     Indication: Diabetes mellitus
     Dosage: 28 UNITS, BID
     Route: 058
     Dates: start: 202002
  9. TRANDOLAPRIL [Concomitant]
     Active Substance: TRANDOLAPRIL
     Indication: Cardiac failure
     Dosage: 0.5 MILLIGRAM, QD
     Route: 048
     Dates: start: 202009
  10. PANTOPRAZOLE SODIUM [Concomitant]
     Active Substance: PANTOPRAZOLE SODIUM
     Indication: Chronic gastritis
     Dosage: 20 MILLIGRAM, QD
     Route: 048
     Dates: start: 202002
  11. VIVACOR                            /00802602/ [Concomitant]
     Indication: Cardiac failure
     Dosage: 6.25 MILLIGRAM, BID
     Route: 048
     Dates: start: 202002

REACTIONS (3)
  - Asthenia [Recovered/Resolved]
  - Dizziness [Recovered/Resolved]
  - Nausea [Recovered/Resolved]

NARRATIVE: CASE EVENT DATE: 20210204
